FAERS Safety Report 15850466 (Version 2)
Quarter: 2019Q3

REPORT INFORMATION
  Report Type: Spontaneous
  Country: US (occurrence: US)
  Receive Date: 20190121
  Receipt Date: 20190903
  Transmission Date: 20191004
  Serious: No
  Sender: FDA-Public Use
  Company Number: US-PFIZER INC-2019023998

PATIENT
  Age: 40 Year
  Sex: Female

DRUGS (1)
  1. GENOTROPIN [Suspect]
     Active Substance: SOMATROPIN
     Indication: BLOOD GROWTH HORMONE
     Dosage: 0.5 MG, DAILY

REACTIONS (4)
  - Fatigue [Unknown]
  - Decreased appetite [Recovering/Resolving]
  - Vitamin D deficiency [Unknown]
  - Depression [Unknown]

NARRATIVE: CASE EVENT DATE: 201810
